FAERS Safety Report 5172420-1 (Version None)
Quarter: 2006Q4

REPORT INFORMATION
  Report Type: 
  Country: None (occurrence: None)
  Receive Date: 20061205
  Receipt Date: 20061114
  Transmission Date: 20070319
  Serious: Yes (Other)
  Sender: FDA-Public Use
  Company Number: S06-FRA-04972-01

PATIENT
  Age: 70 Year
  Sex: Female

DRUGS (2)
  1. MEMANTINE HCL [Suspect]
     Dates: start: 20040101
  2. GALANTAMINE HYDROBROMIDE [Concomitant]

REACTIONS (1)
  - BLOOD CREATINE PHOSPHOKINASE INCREASED [None]
